FAERS Safety Report 6921108-2 (Version None)
Quarter: 2010Q3

REPORT INFORMATION
  Report Type: 
  Country: None (occurrence: None)
  Receive Date: 20100812
  Receipt Date: 20100803
  Transmission Date: 20110219
  Serious: Yes (Hospitalization)
  Sender: FDA-Public Use
  Company Number: JP-ROCHE-720137

PATIENT
  Age: 64 Year
  Sex: Female

DRUGS (3)
  1. XELODA [Suspect]
     Indication: LARGE INTESTINE CARCINOMA
     Dosage: DRUG: XELODA 300(CAPECITABINE)
     Route: 048
     Dates: start: 20100707
  2. ELPLAT [Suspect]
     Indication: LARGE INTESTINE CARCINOMA
     Dosage: NOTE: DOSAGE IS UNCERTAIN.
     Route: 041
  3. LORAZEPAM [Suspect]
     Indication: PSYCHOSOMATIC DISEASE
     Route: 048

REACTIONS (3)
  - COLITIS ISCHAEMIC [None]
  - HAEMORRHAGE [None]
  - PALMAR-PLANTAR ERYTHRODYSAESTHESIA SYNDROME [None]
